FAERS Safety Report 19351138 (Version 2)
Quarter: 2021Q2

REPORT INFORMATION
  Report Type: Spontaneous
  Country: CN (occurrence: CN)
  Receive Date: 20210531
  Receipt Date: 20210617
  Transmission Date: 20210717
  Serious: Yes (Hospitalization, Other)
  Sender: FDA-Public Use
  Company Number: CN-AXELLIA-003798

PATIENT
  Age: 3 Year
  Sex: Female
  Weight: 16 kg

DRUGS (9)
  1. CYCLOPHOSPHAMIDE/CYCLOPHOSPHAMIDE MONOHYDRATE [Suspect]
     Active Substance: CYCLOPHOSPHAMIDE
     Indication: NEUROBLASTOMA
     Dosage: 230 MG, 290 MG, 1380 MG THIRD CHEMOTHERAPY REGIMEN
  2. IMMUNOGLOBULIN [Concomitant]
     Indication: ANTI-INFECTIVE THERAPY
     Route: 042
  3. CEFOPERAZONE/SULBACTAM [Concomitant]
     Active Substance: CEFOPERAZONE\SULBACTAM
     Indication: ANTI-INFECTIVE THERAPY
     Dosage: ON DAY 5 800 MG EVERY 8 H (Q8H) FOR 7 D
     Route: 042
  4. VANCOMYCIN [Suspect]
     Active Substance: VANCOMYCIN
     Indication: ANTI-INFECTIVE THERAPY
     Dosage: 200 MG Q8H INFUSION DURATION OF 40 MIN
  5. VINCRISTINE [Suspect]
     Active Substance: VINCRISTINE
     Indication: NEUROBLASTOMA
     Dosage: THIRD CHEMOTHERAPY REGIMEN (INDUCTION CHEMOTHERAPY)
  6. TOPOTECAN [Suspect]
     Active Substance: TOPOTECAN HYDROCHLORIDE
     Indication: NEUROBLASTOMA
     Dosage: 0.7 MG, SECOND INDUCTION CHEMOTHERAPY
  7. DOXORUBICIN [Suspect]
     Active Substance: DOXORUBICIN
     Indication: NEUROBLASTOMA
     Dosage: THIRD CHEMOTHERAPY REGIMEN (INDUCTION CHEMOTHERAPY)
  8. MEROPENEM. [Concomitant]
     Active Substance: MEROPENEM
     Indication: ROTAVIRUS INFECTION
     Dosage: 300 MG Q8H
     Route: 042
  9. FLUCONAZOLE. [Concomitant]
     Active Substance: FLUCONAZOLE
     Indication: ANTI-INFECTIVE THERAPY
     Dosage: 48 MG DAILY (QD)

REACTIONS (5)
  - Seizure [Recovered/Resolved]
  - Myelosuppression [Unknown]
  - Rotavirus infection [Recovered/Resolved]
  - Renal impairment [Unknown]
  - Drug level increased [Recovered/Resolved]
